FAERS Safety Report 8338673-3 (Version None)
Quarter: 2012Q2

REPORT INFORMATION
  Report Type: 
  Country: None (occurrence: None)
  Receive Date: 20120504
  Receipt Date: 20120427
  Transmission Date: 20120825
  Serious: Yes (Other)
  Sender: FDA-Public Use
  Company Number: SE-ABBOTT-12P-150-0931093-00

PATIENT
  Sex: Female

DRUGS (1)
  1. VALPROATE SODIUM [Suspect]
     Indication: EPILEPSY
     Dates: end: 20100101

REACTIONS (5)
  - EPILEPSY [None]
  - AMNESIA [None]
  - FATIGUE [None]
  - DEPRESSION [None]
  - DISTURBANCE IN ATTENTION [None]
